FAERS Safety Report 4764616-5 (Version None)
Quarter: 2005Q3

REPORT INFORMATION
  Report Type: 
  Country: None (occurrence: None)
  Receive Date: 20050909
  Receipt Date: 20040629
  Transmission Date: 20060218
  Serious: Yes (Other)
  Sender: FDA-Public Use
  Company Number: 2004SE03663

PATIENT
  Age: 17064 Day
  Sex: Female

DRUGS (3)
  1. CRESTOR [Suspect]
     Indication: HYPERCHOLESTEROLAEMIA
     Route: 048
     Dates: start: 20040202, end: 20040405
  2. ATENOLOLUM TABLET 50 MG [Concomitant]
     Indication: HYPERTENSION
     Route: 048
  3. DIOVAN CAPSULE 80 MG [Concomitant]
     Indication: HYPERTENSION
     Route: 048

REACTIONS (1)
  - AUTOIMMUNE HEPATITIS [None]
